FAERS Safety Report 14275436 (Version 2)
Quarter: 2018Q1

REPORT INFORMATION
  Report Type: Spontaneous
  Country: US (occurrence: US)
  Receive Date: 20171212
  Receipt Date: 20180214
  Transmission Date: 20180508
  Serious: Yes (Hospitalization, Other)
  Sender: FDA-Public Use
  Company Number: US-BAYER-2017-235024

PATIENT
  Age: 31 Year
  Sex: Male

DRUGS (3)
  1. KOGENATE FS [Suspect]
     Active Substance: ANTIHEMOPHILIC FACTOR, HUMAN RECOMBINANT
     Indication: FACTOR VIII DEFICIENCY
     Dosage: 50U/KG TO TREAT HAEMARTHROSIS
     Dates: start: 20171108, end: 20171108
  2. KOGENATE FS [Suspect]
     Active Substance: ANTIHEMOPHILIC FACTOR, HUMAN RECOMBINANT
     Indication: FACTOR VIII DEFICIENCY
     Dosage: 3000 IU, EVERY MONDAY/WEDNESDAY/FRIDAY, MAY REPEAT ONCE IN 24H AS DIRECTED
     Route: 042
  3. CITALOPRAM HYDROCHLORIDE [Concomitant]
     Active Substance: CITALOPRAM HYDROCHLORIDE

REACTIONS (10)
  - Loss of consciousness [None]
  - Syncope [None]
  - Dizziness [None]
  - Visual field defect [None]
  - Palpitations [None]
  - Haemorrhage [Recovered/Resolved]
  - Fall [None]
  - Sinus bradycardia [None]
  - Anxiety [None]
  - Haemarthrosis [Recovered/Resolved]

NARRATIVE: CASE EVENT DATE: 20171108
